APPROVED DRUG PRODUCT: NAVANE
Active Ingredient: THIOTHIXENE HYDROCHLORIDE
Strength: EQ 5MG BASE/ML **Federal Register determination that product was not discontinued or withdrawn for safety or effectiveness reasons**
Dosage Form/Route: CONCENTRATE;ORAL
Application: N016758 | Product #001
Applicant: PFIZER INC
Approved: Approved Prior to Jan 1, 1982 | RLD: Yes | RS: No | Type: DISCN